FAERS Safety Report 9675818 (Version 1)
Quarter: 2013Q4

REPORT INFORMATION
  Report Type: Spontaneous
  Country: DE (occurrence: DE)
  Receive Date: 20131107
  Receipt Date: 20131107
  Transmission Date: 20140711
  Serious: Yes (Hospitalization)
  Sender: FDA-Public Use
  Company Number: GXKR2013DE003508

PATIENT
  Age: 17 Year
  Sex: Female
  Weight: 83 kg

DRUGS (1)
  1. LEVOFLOXACIN [Suspect]
     Indication: PYELONEPHRITIS

REACTIONS (3)
  - Myalgia [Unknown]
  - Allodynia [Unknown]
  - Dysaesthesia [Unknown]
